FAERS Safety Report 24199293 (Version 2)
Quarter: 2024Q3

REPORT INFORMATION
  Report Type: Other
  Country: AU (occurrence: AU)
  Receive Date: 20240812
  Receipt Date: 20240913
  Transmission Date: 20241017
  Serious: Yes (Other)
  Sender: LUPIN
  Company Number: 815097

PATIENT
  Age: 78 Year
  Sex: Female

DRUGS (10)
  1. LEVOTHYROXINE SODIUM [Suspect]
     Active Substance: LEVOTHYROXINE SODIUM
     Indication: Atrial fibrillation
     Dosage: UNK
     Route: 065
  2. ATORVASTATIN CALCIUM [Suspect]
     Active Substance: ATORVASTATIN CALCIUM
     Indication: Atrial fibrillation
     Dosage: UNK
     Route: 065
  3. ESOMEPRAZOLE [Suspect]
     Active Substance: ESOMEPRAZOLE
     Indication: Atrial fibrillation
     Dosage: UNK
     Route: 065
  4. EZETIMIBE [Suspect]
     Active Substance: EZETIMIBE
     Indication: Atrial fibrillation
     Dosage: UNK
     Route: 065
  5. CANDESARTAN [Suspect]
     Active Substance: CANDESARTAN
     Indication: Atrial fibrillation
     Dosage: UNK
     Route: 065
  6. ALBUTEROL [Suspect]
     Active Substance: ALBUTEROL
     Indication: Atrial fibrillation
     Dosage: UNK
     Route: 065
  7. BUDESONIDE\FORMOTEROL FUMARATE DIHYDRATE [Suspect]
     Active Substance: BUDESONIDE\FORMOTEROL FUMARATE DIHYDRATE
     Indication: Atrial fibrillation
     Dosage: UNK
     Route: 065
  8. RIVAROXABAN [Suspect]
     Active Substance: RIVAROXABAN
     Indication: Atrial fibrillation
     Dosage: UNK
     Route: 065
  9. SOTALOL HYDROCHLORIDE [Suspect]
     Active Substance: SOTALOL HYDROCHLORIDE
     Indication: Atrial fibrillation
     Dosage: 160 MG, QD
     Route: 065
  10. SPIRONOLACTONE [Suspect]
     Active Substance: SPIRONOLACTONE
     Indication: Atrial fibrillation
     Dosage: UNK
     Route: 065

REACTIONS (1)
  - Long QT syndrome [Unknown]
